FAERS Safety Report 23876720 (Version 6)
Quarter: 2024Q4

REPORT INFORMATION
  Report Type: Report from Study
  Country: KR (occurrence: KR)
  Receive Date: 20240521
  Receipt Date: 20241216
  Transmission Date: 20250115
  Serious: Yes (Death, Hospitalization, Other)
  Sender: JAZZ
  Company Number: KR-BR-2024-0123

PATIENT
  Age: 64 Year
  Sex: Male
  Weight: 68.3 kg

DRUGS (2)
  1. LURBINECTEDIN [Suspect]
     Active Substance: LURBINECTEDIN
     Indication: Small cell lung cancer
     Dosage: 2.2 MILLIGRAM/SQ. METER, Q3W
     Route: 042
     Dates: start: 20240222, end: 20240222
  2. DIOVAN [Concomitant]
     Active Substance: VALSARTAN
     Indication: Hypertension
     Dosage: 80 MILLIGRAM, QD
     Route: 048
     Dates: start: 201201

REACTIONS (1)
  - Pneumonia [Fatal]

NARRATIVE: CASE EVENT DATE: 20240302
